FAERS Safety Report 7830266-7 (Version None)
Quarter: 2011Q4

REPORT INFORMATION
  Report Type: 
  Country: None (occurrence: None)
  Receive Date: 20111021
  Receipt Date: 20111014
  Transmission Date: 20120403
  Serious: Yes (Other)
  Sender: FDA-Public Use
  Company Number: US-PFIZER INC-2011247582

PATIENT
  Age: 82 Year
  Sex: Female

DRUGS (3)
  1. DOBUTAMINE [Concomitant]
     Dosage: 40 UG/KG, PER MINUTE
  2. METOPROLOL [Concomitant]
     Dosage: 50 MG, UNK
  3. ATROPINE [Suspect]
     Indication: STRESS ECHOCARDIOGRAM
     Dosage: 2 MG, UNK

REACTIONS (1)
  - ANTICHOLINERGIC SYNDROME [None]
